FAERS Safety Report 24127816 (Version 1)
Quarter: 2024Q3

REPORT INFORMATION
  Report Type: Spontaneous
  Country: US (occurrence: US)
  Receive Date: 20240723
  Receipt Date: 20240723
  Transmission Date: 20241016
  Serious: Yes (Death, Hospitalization)
  Sender: MYLAN
  Company Number: US-MYLANLABS-2024M1068068

PATIENT
  Age: 3 Week
  Sex: Female

DRUGS (5)
  1. DEXAMETHASONE [Suspect]
     Active Substance: DEXAMETHASONE
     Indication: Respiratory failure
     Dosage: UNK
     Route: 065
  2. AZITHROMYCIN [Suspect]
     Active Substance: AZITHROMYCIN
     Indication: Interstitial lung disease
     Dosage: UNK
     Route: 065
  3. HYDROXYCHLOROQUINE [Suspect]
     Active Substance: HYDROXYCHLOROQUINE
     Indication: Interstitial lung disease
     Dosage: UNK
     Route: 065
  4. METHYLPREDNISOLONE [Suspect]
     Active Substance: METHYLPREDNISOLONE
     Indication: Interstitial lung disease
     Dosage: 10 MILLIGRAM/KILOGRAM, QD, FOR 3 DAYS
     Route: 042
  5. NITRIC OXIDE [Suspect]
     Active Substance: NITRIC OXIDE
     Indication: Respiratory failure
     Dosage: UNK, RESPIRATORY (INHALATION)
     Route: 055

REACTIONS (1)
  - Drug ineffective [Fatal]
